FAERS Safety Report 16840219 (Version 3)
Quarter: 2019Q4

REPORT INFORMATION
  Report Type: Report from Study
  Country: FR (occurrence: FR)
  Receive Date: 20190923
  Receipt Date: 20191105
  Transmission Date: 20200122
  Serious: Yes (Hospitalization)
  Sender: FDA-Public Use
  Company Number: FR-PFIZER INC-2019398617

PATIENT
  Age: 58 Year
  Sex: Male

DRUGS (23)
  1. GEMCITABINE HYDROCHLORIDE. [Suspect]
     Active Substance: GEMCITABINE HYDROCHLORIDE
     Indication: BLADDER TRANSITIONAL CELL CARCINOMA
     Dosage: 1900 MG, DAILY
     Dates: start: 20190308, end: 20190308
  2. CISPLATIN. [Suspect]
     Active Substance: CISPLATIN
     Dosage: 130 MG, DAILY
     Dates: start: 20190529, end: 20190529
  3. AVELUMAB [Suspect]
     Active Substance: AVELUMAB
     Dosage: 720 MG, DAILY
     Dates: start: 20190418, end: 20190418
  4. GEMCITABINE HYDROCHLORIDE. [Suspect]
     Active Substance: GEMCITABINE HYDROCHLORIDE
     Dosage: 1850 MG, DAILY
     Dates: start: 20190418, end: 20190418
  5. GEMCITABINE HYDROCHLORIDE. [Suspect]
     Active Substance: GEMCITABINE HYDROCHLORIDE
     Dosage: 1850 MG, DAILY
     Dates: start: 20190620, end: 20190620
  6. AVELUMAB [Suspect]
     Active Substance: AVELUMAB
     Dosage: 720 MG, DAILY
     Dates: start: 20190509, end: 20190509
  7. AVELUMAB [Suspect]
     Active Substance: AVELUMAB
     Dosage: 740 MG, DAILY
     Dates: start: 20190529, end: 20190529
  8. AVELUMAB [Suspect]
     Active Substance: AVELUMAB
     Dosage: 740 MG, DAILY
     Dates: start: 20190620, end: 20190620
  9. GEMCITABINE HYDROCHLORIDE. [Suspect]
     Active Substance: GEMCITABINE HYDROCHLORIDE
     Dosage: 1850 MG, DAILY
     Dates: start: 20190426, end: 20190426
  10. GEMCITABINE HYDROCHLORIDE. [Suspect]
     Active Substance: GEMCITABINE HYDROCHLORIDE
     Dosage: 1850 MG, DAILY
     Dates: start: 20190509, end: 20190509
  11. AVELUMAB [Suspect]
     Active Substance: AVELUMAB
     Indication: BLADDER TRANSITIONAL CELL CARCINOMA
     Dosage: 740 MG, DAILY
     Dates: start: 20190308, end: 20190308
  12. GEMCITABINE HYDROCHLORIDE. [Suspect]
     Active Substance: GEMCITABINE HYDROCHLORIDE
     Dosage: 1850 MG, DAILY
     Dates: start: 20190517, end: 20190517
  13. CISPLATIN. [Suspect]
     Active Substance: CISPLATIN
     Dosage: 129 MG, DAILY
     Dates: start: 20190509, end: 20190509
  14. GEMCITABINE HYDROCHLORIDE. [Suspect]
     Active Substance: GEMCITABINE HYDROCHLORIDE
     Dosage: 1850 MG, DAILY
     Dates: start: 20190328, end: 20190328
  15. GEMCITABINE HYDROCHLORIDE. [Suspect]
     Active Substance: GEMCITABINE HYDROCHLORIDE
     Dosage: 1850 MG, DAILY
     Dates: start: 20190529, end: 20190529
  16. CISPLATIN. [Suspect]
     Active Substance: CISPLATIN
     Dosage: 131 MG, DAILY
     Dates: start: 20190621, end: 20190621
  17. GEMCITABINE HYDROCHLORIDE. [Suspect]
     Active Substance: GEMCITABINE HYDROCHLORIDE
     Dosage: 1850 MG, DAILY
     Dates: start: 20190315, end: 20190315
  18. CISPLATIN. [Suspect]
     Active Substance: CISPLATIN
     Dosage: 129 MG, DAILY
     Dates: start: 20190418, end: 20190418
  19. AVELUMAB [Suspect]
     Active Substance: AVELUMAB
     Dosage: 730 MG, DAILY
     Dates: start: 20190328, end: 20190328
  20. GEMCITABINE HYDROCHLORIDE. [Suspect]
     Active Substance: GEMCITABINE HYDROCHLORIDE
     Dosage: 1850 MG, DAILY
     Dates: start: 20190405, end: 20190405
  21. GEMCITABINE HYDROCHLORIDE. [Suspect]
     Active Substance: GEMCITABINE HYDROCHLORIDE
     Dosage: 1900 MG, DAILY
     Dates: start: 20190607, end: 20190607
  22. CISPLATIN. [Suspect]
     Active Substance: CISPLATIN
     Indication: BLADDER TRANSITIONAL CELL CARCINOMA
     Dosage: 130 MG, DAILY
     Dates: start: 20190308, end: 20190308
  23. CISPLATIN. [Suspect]
     Active Substance: CISPLATIN
     Dosage: 131 MG, DAILY
     Dates: start: 20190328, end: 20190328

REACTIONS (2)
  - Gastritis [Recovered/Resolved]
  - Abdominal pain [Recovered/Resolved]

NARRATIVE: CASE EVENT DATE: 20190628
